FAERS Safety Report 4995921-5 (Version None)
Quarter: 2006Q2

REPORT INFORMATION
  Report Type: 
  Country: None (occurrence: None)
  Receive Date: 20060508
  Receipt Date: 20050930
  Transmission Date: 20061013
  Serious: Yes (Hospitalization)
  Sender: FDA-Public Use
  Company Number: US-MERCK-0510USA02163

PATIENT
  Age: 48 Year
  Sex: Female
  Weight: 107 kg

DRUGS (18)
  1. ALLEGRA [Concomitant]
     Route: 065
  2. BEXTRA [Concomitant]
     Route: 065
  3. DICYCLOMINE HYDROCHLORIDE [Concomitant]
     Route: 065
  4. ASPIRIN [Concomitant]
     Route: 065
  5. VIOXX [Suspect]
     Indication: ARTHRITIS
     Route: 048
     Dates: start: 20001127, end: 20020201
  6. VIOXX [Suspect]
     Indication: ARTHRALGIA
     Route: 048
     Dates: start: 20001127, end: 20020201
  7. ZANTAC [Concomitant]
     Route: 065
  8. AMOXIL [Concomitant]
     Route: 065
     Dates: start: 20001127
  9. NALEX-A [Concomitant]
     Route: 065
     Dates: start: 20001127
  10. BUSPAR [Concomitant]
     Route: 065
     Dates: start: 20001127
  11. DOXEPIN HYDROCHLORIDE [Concomitant]
     Route: 065
     Dates: start: 20010118
  12. ATUSS DM [Concomitant]
     Route: 065
     Dates: start: 20010118
  13. ACIPHEX [Concomitant]
     Route: 065
  14. IMIPRAMINE HYDROCHLORIDE [Concomitant]
     Route: 065
  15. NITROGLYCERIN [Concomitant]
     Route: 065
  16. CELEBREX [Concomitant]
     Route: 065
  17. EFFEXOR [Concomitant]
     Route: 065
  18. DILTIAZEM HYDROCHLORIDE [Concomitant]
     Route: 065

REACTIONS (33)
  - ANGINA PECTORIS [None]
  - ARTERIOSCLEROSIS [None]
  - BACK INJURY [None]
  - BACK PAIN [None]
  - BLOOD PRESSURE INCREASED [None]
  - CHEST DISCOMFORT [None]
  - CHEST PAIN [None]
  - CHOLELITHIASIS [None]
  - COUGH [None]
  - DEPRESSION [None]
  - DIZZINESS [None]
  - DYSPNOEA [None]
  - FALL [None]
  - GASTROOESOPHAGEAL REFLUX DISEASE [None]
  - GENERAL SYMPTOM [None]
  - HAEMORRHOIDS [None]
  - HEADACHE [None]
  - HOSPITALISATION [None]
  - HYPERLIPIDAEMIA [None]
  - HYPERTENSION [None]
  - IRRITABLE BOWEL SYNDROME [None]
  - ISCHAEMIA [None]
  - MYOCARDIAL ISCHAEMIA [None]
  - NAUSEA [None]
  - NECK PAIN [None]
  - OEDEMA [None]
  - PAIN [None]
  - PALPITATIONS [None]
  - ROAD TRAFFIC ACCIDENT [None]
  - SINUS TACHYCARDIA [None]
  - SKIN LACERATION [None]
  - SYNCOPE [None]
  - SYNOVIAL CYST [None]
